FAERS Safety Report 26001760 (Version 1)
Quarter: 2025Q4

REPORT INFORMATION
  Report Type: Report from Study
  Country: EU (occurrence: EU)
  Receive Date: 20251105
  Receipt Date: 20251105
  Transmission Date: 20260118
  Serious: Yes (Hospitalization)
  Sender: DAIICHI
  Company Number: EU-DSJP-DS-2025-157743-IT

PATIENT
  Age: 79 Year
  Sex: Male

DRUGS (17)
  1. ENHERTU [Suspect]
     Active Substance: FAM-TRASTUZUMAB DERUXTECAN-NXKI
     Indication: HER2 positive gastric cancer
     Dosage: 5.44 MG/KG
     Route: 065
     Dates: start: 20250612
  2. ENHERTU [Suspect]
     Active Substance: FAM-TRASTUZUMAB DERUXTECAN-NXKI
     Indication: Oesophageal adenocarcinoma
     Dosage: 4.4 MG/KG
     Route: 065
     Dates: start: 20250717, end: 20250717
  3. AKYNZEO (NETUPITANT\PALONOSETRON HYDROCHLORIDE) [Concomitant]
     Active Substance: NETUPITANT\PALONOSETRON HYDROCHLORIDE
     Indication: Vomiting
     Dosage: 1 DOSAGE FORM AT EVERY CYCLE OF THERAPY
     Route: 048
     Dates: start: 20250612
  4. PANTOPRAZOLE [Concomitant]
     Active Substance: PANTOPRAZOLE
     Indication: Gastric ulcer
     Dosage: 40 MG AT EVERY CYCLE OF THERAPY
     Route: 042
     Dates: start: 20250612
  5. DEXAMETHASONE [Concomitant]
     Active Substance: DEXAMETHASONE
     Indication: Hypersensitivity
     Dosage: 12 MG AT EVERY CYCLE OF THERAPY
     Route: 042
     Dates: start: 20250612
  6. ERYTHROPOIETIN [Concomitant]
     Active Substance: ERYTHROPOIETIN
     Indication: Anaemia
     Dosage: 1 VIAL, ONCE EVERY 2 WK
     Route: 058
     Dates: start: 20220721
  7. ASCORBIC ACID\FERRIC PYROPHOSPHATE [Concomitant]
     Active Substance: ASCORBIC ACID\FERRIC PYROPHOSPHATE
     Indication: Anaemia
     Dosage: 1 DOSAGE FORM, BID
     Route: 048
     Dates: start: 20250516
  8. ASPIRIN [Concomitant]
     Active Substance: ASPIRIN
     Indication: Thrombosis
     Dosage: 1 DOSAGE FORM, QD
     Route: 048
     Dates: start: 20220831
  9. RANEXA [Concomitant]
     Active Substance: RANOLAZINE
     Indication: Angina pectoris
     Dosage: 375 MG, BID
     Route: 048
     Dates: start: 20241204
  10. NORMOSOL-R [Concomitant]
     Active Substance: MAGNESIUM CHLORIDE\POTASSIUM CHLORIDE\SODIUM ACETATE ANHYDROUS\SODIUM CHLORIDE\SODIUM GLUCONATE
     Indication: Dehydration
     Dosage: 500 ML, SINGLE
     Route: 042
     Dates: start: 20250710, end: 20250710
  11. MYCOSTATIN [Concomitant]
     Active Substance: NYSTATIN
     Indication: Mucosal inflammation
     Dosage: 1 SPOON, BID
     Route: 048
     Dates: start: 20250710, end: 20250717
  12. PEGFILGRASTIM [Concomitant]
     Active Substance: PEGFILGRASTIM
     Indication: Neutropenia
     Dosage: 1 VIAL, SINGLE
     Route: 058
     Dates: start: 20250719, end: 20250719
  13. DEXAMETHASONE SODIUM PHOSPHATE [Concomitant]
     Active Substance: DEXAMETHASONE SODIUM PHOSPHATE
     Indication: Hypersensitivity
     Dosage: 4 MG, QD
     Route: 048
     Dates: start: 20250717
  14. RINGERS SOLUTION [Concomitant]
     Active Substance: CALCIUM CHLORIDE\POTASSIUM CHLORIDE\SODIUM CHLORIDE
     Indication: Dehydration
     Dosage: 500 ML, QD
     Route: 042
  15. RINGERS SOLUTION [Concomitant]
     Active Substance: CALCIUM CHLORIDE\POTASSIUM CHLORIDE\SODIUM CHLORIDE
     Dosage: 1000 ML, QD
     Route: 042
     Dates: start: 20250730, end: 20250805
  16. KCL [Concomitant]
     Active Substance: POTASSIUM CHLORIDE
     Indication: Hypokalaemia
     Dosage: 1 DOSAGE FORM, SINGLE
     Route: 042
     Dates: start: 20250805, end: 20250805
  17. METFORMIN [Concomitant]
     Active Substance: METFORMIN HYDROCHLORIDE
     Indication: Hyperglycaemia
     Dosage: 500 MG, BID
     Route: 048
     Dates: start: 20250730

REACTIONS (13)
  - Malaise [Recovered/Resolved]
  - Weight decreased [Recovered/Resolved]
  - Fatigue [Recovered/Resolved]
  - Decreased appetite [Recovered/Resolved]
  - Dehydration [Recovered/Resolved]
  - Hypomagnesaemia [Not Recovered/Not Resolved]
  - Bronchiolitis [Not Recovered/Not Resolved]
  - Malaise [Not Recovered/Not Resolved]
  - Dehydration [Not Recovered/Not Resolved]
  - Decreased appetite [Not Recovered/Not Resolved]
  - Fatigue [Not Recovered/Not Resolved]
  - Hypokalaemia [Not Recovered/Not Resolved]
  - Hyperglycaemia [Recovered/Resolved]

NARRATIVE: CASE EVENT DATE: 20250730
